FAERS Safety Report 8127542-X (Version None)
Quarter: 2011Q4

REPORT INFORMATION
  Report Type: 
  Country: None (occurrence: None)
  Receive Date: 20111227
  Receipt Date: 20111110
  Transmission Date: 20120403
  Serious: No
  Sender: FDA-Public Use
  Company Number: PHEH2011US08305

PATIENT
  Age: 69 Year
  Sex: Female

DRUGS (9)
  1. PYRIDIUM (PHENAZOPYRIDINE HYDROCHLORIDE) [Concomitant]
  2. ASPIRIN [Concomitant]
  3. PROVIGIL [Concomitant]
  4. VIVELLE-DOT [Concomitant]
  5. VITAMINS (VITAMINS NOS) [Concomitant]
  6. PROMETRIUM [Concomitant]
  7. GILENYA [Suspect]
     Indication: MULTIPLE SCLEROSIS
     Dosage: 0.5 MG, QD, ORAL
     Route: 048
     Dates: start: 20101122
  8. STOOL SOFTENER (DOCUSATE SODIUM) [Concomitant]
  9. POTASSIUM CHLORIDE [Concomitant]

REACTIONS (1)
  - FATIGUE [None]
